FAERS Safety Report 4949062-3 (Version None)
Quarter: 2006Q1

REPORT INFORMATION
  Report Type: 
  Country: None (occurrence: None)
  Receive Date: 20060321
  Receipt Date: 20060221
  Transmission Date: 20060701
  Serious: Yes (Other)
  Sender: FDA-Public Use
  Company Number: DE-GLAXOSMITHKLINE-D0048799A

PATIENT
  Age: 62 Year
  Sex: Female
  Weight: 74 kg

DRUGS (7)
  1. REQUIP [Suspect]
     Indication: PARKINSON'S DISEASE
     Dosage: 6MG THREE TIMES PER DAY
     Route: 048
     Dates: start: 19980101
  2. MADOPAR [Concomitant]
     Route: 065
  3. AMANTADINE HCL [Concomitant]
     Indication: PARKINSON'S DISEASE
     Dosage: 100MG THREE TIMES PER DAY
     Route: 065
     Dates: start: 19980101
  4. MAO INHIBITORS [Concomitant]
     Indication: PARKINSON'S DISEASE
     Dosage: 1.25MG PER DAY
     Route: 065
     Dates: start: 19980101, end: 20060101
  5. L-DOPA [Concomitant]
     Indication: PARKINSON'S DISEASE
     Dosage: 100MG FIVE TIMES PER DAY
     Route: 065
     Dates: start: 20010101
  6. ENTACAPONE [Concomitant]
     Indication: PARKINSON'S DISEASE
     Dosage: 200MG FOUR TIMES PER DAY
     Route: 065
     Dates: start: 20020101
  7. SELEGILIN [Concomitant]
     Indication: PARKINSON'S DISEASE
     Dosage: 5MG PER DAY
     Route: 065
     Dates: start: 19980101, end: 20060101

REACTIONS (8)
  - ANAEMIA HAEMOLYTIC AUTOIMMUNE [None]
  - ASTHENIA [None]
  - DYSPNOEA [None]
  - FATIGUE [None]
  - FEAR [None]
  - LISTLESS [None]
  - PALLOR [None]
  - SPLENOMEGALY [None]
